FAERS Safety Report 5177096-5 (Version None)
Quarter: 2006Q4

REPORT INFORMATION
  Report Type: 
  Country: None (occurrence: None)
  Receive Date: 20061207
  Receipt Date: 20061128
  Transmission Date: 20070319
  Serious: Yes (Other)
  Sender: FDA-Public Use
  Company Number: 2006146722

PATIENT
  Age: 45 Year
  Sex: Female
  Weight: 109.7 kg

DRUGS (1)
  1. GENOTROPIN [Suspect]
     Indication: HYPOPITUITARISM
     Dosage: 0.6 MG (DAILY)
     Dates: start: 20020401, end: 20060730

REACTIONS (2)
  - CRANIOPHARYNGIOMA [None]
  - DISEASE RECURRENCE [None]
